FAERS Safety Report 16333287 (Version 2)
Quarter: 2019Q2

REPORT INFORMATION
  Report Type: Spontaneous
  Country: US (occurrence: US)
  Receive Date: 20190520
  Receipt Date: 20190524
  Transmission Date: 20190711
  Serious: No
  Sender: FDA-Public Use
  Company Number: US-CARDINAL HEALTH 414, LLC-2067196

PATIENT
  Age: 51 Year
  Sex: Female

DRUGS (1)
  1. TECHNETIUM TC-99M SESTAMIBI KIT [Suspect]
     Active Substance: TECHNETIUM TC-99M SESTAMIBI
     Indication: SCAN PARATHYROID
     Route: 042
     Dates: start: 20181121, end: 20181121

REACTIONS (8)
  - Hypersensitivity [Unknown]
  - Swollen tongue [Unknown]
  - Hypoaesthesia oral [Unknown]
  - Swelling [Unknown]
  - Retching [Unknown]
  - Diarrhoea [Unknown]
  - Abdominal distension [Unknown]
  - Off label use [Unknown]

NARRATIVE: CASE EVENT DATE: 20181121
